FAERS Safety Report 20124657 (Version 1)
Quarter: 2021Q4

REPORT INFORMATION
  Report Type: Spontaneous
  Country: US (occurrence: None)
  Receive Date: 20211126
  Receipt Date: 20211126
  Transmission Date: 20220304
  Serious: Yes (Other)
  Sender: FDA-Public Use
  Company Number: None

PATIENT
  Age: 48 Year
  Sex: Male
  Weight: 93.15 kg

DRUGS (2)
  1. OLD SPICE HIGH ENDURANCE PURE SPORT [Suspect]
     Active Substance: ALUMINUM CHLOROHYDRATE\ALUMINUM ZIRCONIUM TRICHLOROHYDREX GLY
     Dates: start: 20210308, end: 20210511
  2. OLD SPICE [Suspect]
     Active Substance: ALUMINUM ZIRCONIUM TRICHLOROHYDREX GLY

REACTIONS (3)
  - Rash [None]
  - Skin burning sensation [None]
  - Lacrimation increased [None]

NARRATIVE: CASE EVENT DATE: 20210511
